FAERS Safety Report 7058670-8 (Version None)
Quarter: 2010Q4

REPORT INFORMATION
  Report Type: 
  Country: None (occurrence: None)
  Receive Date: 20101022
  Receipt Date: 20101012
  Transmission Date: 20110411
  Serious: Yes (Other)
  Sender: FDA-Public Use
  Company Number: US-AMGEN INC.-USASP2010000373

PATIENT

DRUGS (1)
  1. NPLATE [Suspect]
     Indication: IDIOPATHIC THROMBOCYTOPENIC PURPURA
     Dosage: UNK
     Dates: start: 20090417

REACTIONS (3)
  - BIOPSY BONE MARROW ABNORMAL [None]
  - MEGAKARYOCYTES ABNORMAL [None]
  - MEGAKARYOCYTES INCREASED [None]
